FAERS Safety Report 4580272-3 (Version None)
Quarter: 2005Q1

REPORT INFORMATION
  Report Type: 
  Country: None (occurrence: None)
  Receive Date: 20050214
  Receipt Date: 20050128
  Transmission Date: 20050727
  Serious: Yes (Other)
  Sender: FDA-Public Use
  Company Number: AU-GLAXOSMITHKLINE-B0371122A

PATIENT
  Age: 46 Year
  Sex: Female
  Weight: 82 kg

DRUGS (2)
  1. IMIGRAN [Suspect]
     Indication: MIGRAINE
     Dosage: 1U SINGLE DOSE
     Route: 048
     Dates: start: 19921202
  2. INDERAL [Concomitant]
     Indication: MIGRAINE
     Dosage: 120MG PER DAY
     Route: 048
     Dates: start: 19920605

REACTIONS (2)
  - HYPERHIDROSIS [None]
  - SYNCOPE [None]
